FAERS Safety Report 6396066-2 (Version None)
Quarter: 2009Q4

REPORT INFORMATION
  Report Type: 
  Country: None (occurrence: None)
  Receive Date: 20091009
  Receipt Date: 20090928
  Transmission Date: 20100525
  Serious: Yes (Hospitalization)
  Sender: FDA-Public Use
  Company Number: US-WATSON-2009-08062

PATIENT
  Age: 77 Year
  Sex: Female

DRUGS (3)
  1. IRINOTECAN HYDROCHLORIDE [Suspect]
     Indication: COLON CANCER METASTATIC
     Dosage: 200 MG/M2, DAY 1, REPEATED EVERY 21 DAYS
     Route: 042
     Dates: start: 20050401
  2. BEVACIZUMAB [Suspect]
     Indication: COLON CANCER METASTATIC
     Dosage: 7.5 MG/KG, ON DAY 1
     Route: 042
     Dates: start: 20050401
  3. CAPECITABINE [Suspect]
     Indication: COLON CANCER METASTATIC
     Dosage: 1000 MG/M2, BID, DAYS 1-14
     Route: 042
     Dates: start: 20050401

REACTIONS (1)
  - FANCONI SYNDROME ACQUIRED [None]
